FAERS Safety Report 21911198 (Version 1)
Quarter: 2023Q1

REPORT INFORMATION
  Report Type: Spontaneous
  Country: JP (occurrence: JP)
  Receive Date: 20230125
  Receipt Date: 20230125
  Transmission Date: 20230417
  Serious: Yes (Other)
  Sender: FDA-Public Use
  Company Number: JP-MTPC-MTPC2023-0001066AA

PATIENT
  Age: 44 Year
  Sex: Male

DRUGS (2)
  1. REMICADE [Suspect]
     Active Substance: INFLIXIMAB
     Indication: Crohn^s disease
     Route: 065
  2. AZATHIOPRINE [Suspect]
     Active Substance: AZATHIOPRINE
     Indication: Crohn^s disease
     Route: 065

REACTIONS (6)
  - Non-cirrhotic portal hypertension [Unknown]
  - Varices oesophageal [Unknown]
  - Gastric varices [Unknown]
  - Therapeutic product effect decreased [Unknown]
  - Splenomegaly [Unknown]
  - Platelet count decreased [Unknown]
